FAERS Safety Report 21635763 (Version 1)
Quarter: 2022Q4

REPORT INFORMATION
  Report Type: Spontaneous
  Country: FR (occurrence: FR)
  Receive Date: 20221123
  Receipt Date: 20221123
  Transmission Date: 20230112
  Serious: Yes (Life-Threatening)
  Sender: FDA-Public Use
  Company Number: None

PATIENT
  Age: 68 Year
  Sex: Female
  Weight: 56 kg

DRUGS (7)
  1. POSACONAZOLE [Suspect]
     Active Substance: POSACONAZOLE
     Indication: Antifungal prophylaxis
     Dosage: 300 MILLIGRAM, QD
     Route: 048
     Dates: start: 20220923, end: 20221002
  2. VENLAFAXINE HYDROCHLORIDE [Suspect]
     Active Substance: VENLAFAXINE HYDROCHLORIDE
     Indication: Depression
     Dosage: 37.5 MILLIGRAM, QD
     Route: 048
     Dates: end: 20221003
  3. ONDANSETRON HYDROCHLORIDE [Suspect]
     Active Substance: ONDANSETRON HYDROCHLORIDE
     Indication: Nausea
     Dosage: 8 MILLIGRAM, QD
     Dates: start: 20220928, end: 20221004
  4. DESLORATADINE [Suspect]
     Active Substance: DESLORATADINE
     Indication: Product used for unknown indication
     Dosage: 5 MILLIGRAM, QD
     Route: 048
     Dates: start: 20220922, end: 20221002
  5. ABECMA [Suspect]
     Active Substance: IDECABTAGENE VICLEUCEL
     Indication: Plasma cell myeloma
     Dosage: UNK, 1 TOTAL
     Route: 042
     Dates: start: 20221003, end: 20221003
  6. BACTRIM [Suspect]
     Active Substance: SULFAMETHOXAZOLE\TRIMETHOPRIM
     Indication: Opportunistic infection prophylaxis
     Dosage: 1TAB MONDAY-WEDNESDAY-FRIDAY
     Route: 048
  7. TOCILIZUMAB [Suspect]
     Active Substance: TOCILIZUMAB
     Indication: Cytokine release syndrome
     Dosage: 440 MILLIGRAM
     Route: 042
     Dates: start: 20221004, end: 20221004

REACTIONS (1)
  - Torsade de pointes [Recovered/Resolved]

NARRATIVE: CASE EVENT DATE: 20221004
